FAERS Safety Report 8455525-9 (Version None)
Quarter: 2012Q2

REPORT INFORMATION
  Report Type: 
  Country: None (occurrence: None)
  Receive Date: 20120621
  Receipt Date: 20120618
  Transmission Date: 20120825
  Serious: Yes (Other)
  Sender: FDA-Public Use
  Company Number: US-PFIZER INC-2012129757

PATIENT
  Sex: Male

DRUGS (2)
  1. REVATIO [Suspect]
     Dosage: UNK, 1X/DAY (1 TABLET PER DAY)
  2. REVATIO [Suspect]
     Indication: PULMONARY HYPERTENSION
     Dosage: 20 MG, 3X/DAY
     Dates: start: 20100831

REACTIONS (1)
  - DRUG HYPERSENSITIVITY [None]
